FAERS Safety Report 6991724-0 (Version None)
Quarter: 2010Q3

REPORT INFORMATION
  Report Type: 
  Country: None (occurrence: None)
  Receive Date: 20100915
  Receipt Date: 20100915
  Transmission Date: 20110219
  Serious: Yes (Life-Threatening, Hospitalization)
  Sender: FDA-Public Use
  Company Number: None

PATIENT
  Age: 66 Year
  Sex: Female
  Weight: 50.8029 kg

DRUGS (1)
  1. FOSAMAX [Suspect]
     Indication: PROPHYLAXIS
     Dosage: ONE TABLET WEEKLY PO
     Route: 048

REACTIONS (2)
  - FEMUR FRACTURE [None]
  - NO THERAPEUTIC RESPONSE [None]
